FAERS Safety Report 8122552-0 (Version None)
Quarter: 2012Q1

REPORT INFORMATION
  Report Type: 
  Country: None (occurrence: None)
  Receive Date: 20120208
  Receipt Date: 20120206
  Transmission Date: 20120608
  Serious: Yes (Death, Other)
  Sender: FDA-Public Use
  Company Number: GB-ROCHE-1037507

PATIENT
  Sex: Female
  Weight: 49 kg

DRUGS (4)
  1. STEROIDS NOS [Concomitant]
  2. AZULFIDINE [Concomitant]
  3. METHOTREXATE [Concomitant]
  4. MABTHERA [Suspect]
     Indication: RHEUMATOID ARTHRITIS

REACTIONS (4)
  - MYELOPATHY [None]
  - BRONCHOPNEUMONIA [None]
  - CARDIAC FAILURE CONGESTIVE [None]
  - CERVICAL SPINAL STENOSIS [None]
